FAERS Safety Report 11072527 (Version 1)
Quarter: 2015Q2

REPORT INFORMATION
  Report Type: Spontaneous
  Country: US (occurrence: US)
  Receive Date: 20150428
  Receipt Date: 20150428
  Transmission Date: 20150821
  Serious: No
  Sender: FDA-Public Use
  Company Number: US-EMD SERONO-8022029

PATIENT

DRUGS (1)
  1. REBIF [Suspect]
     Active Substance: INTERFERON BETA-1A
     Indication: PRODUCT USED FOR UNKNOWN INDICATION
     Dates: start: 20111101, end: 20150406

REACTIONS (11)
  - Alopecia [Unknown]
  - Hypoaesthesia [Unknown]
  - Burning sensation [Unknown]
  - Hot flush [Unknown]
  - Injection site bruising [Unknown]
  - Influenza like illness [Unknown]
  - Injection site erythema [Unknown]
  - Injection site pain [Unknown]
  - Paraesthesia [Unknown]
  - Breast pain [Unknown]
  - Night sweats [Unknown]
